FAERS Safety Report 6112306-9 (Version None)
Quarter: 2009Q1

REPORT INFORMATION
  Report Type: 
  Country: None (occurrence: None)
  Receive Date: 20090311
  Receipt Date: 20090311
  Transmission Date: 20090719
  Serious: Yes (Disabling)
  Sender: FDA-Public Use
  Company Number: None

PATIENT
  Age: 70 Year
  Sex: Female
  Weight: 77.1115 kg

DRUGS (3)
  1. LEVAQUIN [Suspect]
     Indication: PNEUMONIA
     Dosage: 500 MG 1/DAY
     Dates: start: 20090217, end: 20090223
  2. FEXOFENADINE [Concomitant]
  3. CODEINE COUGH MEDICINE [Concomitant]

REACTIONS (2)
  - ABASIA [None]
  - ARTHRALGIA [None]
